FAERS Safety Report 7813207-8 (Version None)
Quarter: 2011Q4

REPORT INFORMATION
  Report Type: 
  Country: None (occurrence: None)
  Receive Date: 20111013
  Receipt Date: 20111007
  Transmission Date: 20120403
  Serious: Yes (Hospitalization)
  Sender: FDA-Public Use
  Company Number: US-B.I. PHARMACEUTICALS,INC./RIDGEFIELD-2011-BP-17153BP

PATIENT
  Age: 81 Year
  Sex: Male

DRUGS (16)
  1. NEXIUM [Concomitant]
     Indication: GASTROOESOPHAGEAL REFLUX DISEASE
     Dosage: 40 MG
     Route: 048
  2. MIRALAX [Concomitant]
     Indication: CONSTIPATION
     Route: 048
  3. RESTORIL [Concomitant]
     Indication: INSOMNIA
     Route: 048
  4. MAGNESIUM [Concomitant]
     Indication: SUPPLEMENTATION THERAPY
     Route: 048
  5. VIAGRA [Concomitant]
     Indication: ERECTILE DYSFUNCTION
     Route: 048
  6. KCLOR CON [Concomitant]
     Indication: SUPPLEMENTATION THERAPY
     Dosage: 20 MG
     Route: 048
  7. CYCLOBENZAPRINE [Concomitant]
     Indication: PAIN
     Dosage: 30 MG
     Route: 048
  8. ATENOLOL [Concomitant]
     Indication: ATRIAL FIBRILLATION
     Dosage: 25 MG
     Route: 048
  9. NIASPAN [Concomitant]
     Indication: BLOOD CHOLESTEROL INCREASED
     Dosage: 500 MG
     Route: 048
  10. XANAX [Concomitant]
     Indication: ANXIETY
     Route: 048
  11. HYZAAR [Concomitant]
     Indication: HYPERTENSION
     Dosage: 12.5 MG
     Route: 048
  12. LASIX [Concomitant]
     Indication: HYPERTENSION
     Dosage: 40 MG
     Route: 048
  13. CRESTOR [Concomitant]
     Indication: BLOOD CHOLESTEROL INCREASED
     Route: 048
  14. PRADAXA [Suspect]
     Indication: ATRIAL FIBRILLATION
     Dosage: 300 MG
     Route: 048
     Dates: start: 20110420
  15. HYDROCAP [Concomitant]
     Indication: PAIN
     Route: 048
  16. DIGOXIN [Concomitant]
     Indication: ATRIAL FIBRILLATION
     Dosage: 0.25 MG
     Route: 048

REACTIONS (3)
  - KIDNEY INFECTION [None]
  - BACK PAIN [None]
  - INTERVERTEBRAL DISCITIS [None]
